FAERS Safety Report 11617141 (Version 1)
Quarter: 2015Q4

REPORT INFORMATION
  Report Type: Spontaneous
  Country: DE (occurrence: DE)
  Receive Date: 20151009
  Receipt Date: 20151009
  Transmission Date: 20160304
  Serious: Yes (Hospitalization)
  Sender: FDA-Public Use
  Company Number: DE-TEVA-598663GER

PATIENT
  Age: 84 Year
  Sex: Female
  Weight: 66 kg

DRUGS (9)
  1. HCT AL [Concomitant]
     Dosage: 12.5 MILLIGRAM DAILY;
     Route: 048
  2. CALCIUM D3 STADA 1000MG/ 880 [Concomitant]
     Dosage: 1 DOSAGE FORMS DAILY; CALCIUM 1000MG PLUS COLECALCIFEROL (VITAMINE D3) 800
     Route: 048
  3. AMLODIPIN 1 A PHARMA [Concomitant]
     Dosage: 5 MILLIGRAM DAILY;
     Route: 048
  4. TILIDIN 100/8 MG RETARD 1 A PHARMA [Concomitant]
     Dosage: 3 DOSAGE FORMS DAILY; TILIDINE 100MG PLUS NALOXONE 8 MG
     Route: 048
  5. NOVAMINSULFON RAT 500 MG/ML [Concomitant]
     Dosage: 40-40-40-40
     Route: 048
  6. GABAPENTIN. [Suspect]
     Active Substance: GABAPENTIN
     Indication: NEURALGIA
     Dosage: 300 MILLIGRAM DAILY;
     Route: 048
     Dates: start: 2013, end: 20150818
  7. METOHEXAL [Concomitant]
     Active Substance: METOPROLOL SUCCINATE
     Dosage: 95 MILLIGRAM DAILY;
     Route: 048
  8. ALENDRO-Q [Concomitant]
     Route: 048
  9. CANDESARTAN 1 A PHARMA [Concomitant]
     Dosage: 32 MILLIGRAM DAILY;
     Route: 048

REACTIONS (2)
  - Hyponatraemia [Recovered/Resolved]
  - Inappropriate antidiuretic hormone secretion [Recovered/Resolved]

NARRATIVE: CASE EVENT DATE: 20150807
